FAERS Safety Report 11317580 (Version 2)
Quarter: 2015Q3

REPORT INFORMATION
  Report Type: Spontaneous
  Country: FR (occurrence: FR)
  Receive Date: 20150728
  Receipt Date: 20150831
  Transmission Date: 20151125
  Serious: Yes (Other)
  Sender: FDA-Public Use
  Company Number: FR-SA-2015SA106220

PATIENT
  Age: 47 Year
  Sex: Female

DRUGS (17)
  1. DIFFU K [Concomitant]
     Active Substance: POTASSIUM CHLORIDE
     Route: 048
     Dates: start: 20150609, end: 20150622
  2. PHOSPHONEUROS [Concomitant]
     Active Substance: CALCIUM PHOSPHATE, DIBASIC, ANHYDROUS\MAGNESIUM GLYCEROPHOSPHATE\PHOSPHORIC ACID\SODIUM PHOSPHATE, DIBASIC
     Route: 048
     Dates: start: 20150610, end: 20150616
  3. DAKIN COOPER [Concomitant]
     Dates: start: 20150608
  4. LOVENOX [Suspect]
     Active Substance: ENOXAPARIN SODIUM
     Route: 058
     Dates: start: 20150612, end: 20150624
  5. ULTRA-LEVURE [Concomitant]
     Active Substance: SACCHAROMYCES CEREVISIAE
     Route: 048
     Dates: start: 20150621, end: 20150625
  6. FLAGYL [Concomitant]
     Active Substance: METRONIDAZOLE\METRONIDAZOLE HYDROCHLORIDE
     Dates: start: 20150609, end: 20150620
  7. MAG 2 [Concomitant]
     Active Substance: MAGNESIUM CHLORIDE
     Dates: start: 20150610, end: 20150618
  8. LOXAPAC [Suspect]
     Active Substance: LOXAPINE SUCCINATE
     Route: 048
     Dates: start: 20150613, end: 20150615
  9. LOXAPAC [Suspect]
     Active Substance: LOXAPINE SUCCINATE
     Route: 048
     Dates: start: 20150616, end: 20150624
  10. VALIUM [Concomitant]
     Active Substance: DIAZEPAM
     Route: 048
     Dates: start: 20150608, end: 20150615
  11. RISPERDAL CONSTA [Suspect]
     Active Substance: RISPERIDONE
     Route: 065
  12. TIORFAN [Concomitant]
     Active Substance: RACECADOTRIL
     Route: 048
     Dates: start: 20150609, end: 20150617
  13. CHLORINATED SODA SOLUTION [Concomitant]
     Dates: start: 20150608
  14. RISPERDAL CONSTA [Suspect]
     Active Substance: RISPERIDONE
     Dosage: RISPERDALCONSTA 50 MG, 1 DF EVERY THREE WEEKS
     Route: 048
     Dates: start: 20150608
  15. TERCIAN [Concomitant]
     Active Substance: CYAMEMAZINE
     Route: 048
     Dates: start: 20150609, end: 20150612
  16. DEPAKINE [Concomitant]
     Active Substance: VALPROATE SODIUM
     Route: 048
     Dates: start: 20150608
  17. RISPERDAL [Suspect]
     Active Substance: RISPERIDONE
     Dosage: RISPERDAL 4 MG TAB, 1 DF WEEKLY
     Route: 048
     Dates: start: 20150608

REACTIONS (6)
  - Rash [Recovered/Resolved]
  - Blood creatine phosphokinase increased [Recovered/Resolved]
  - Macule [Recovered/Resolved]
  - Hypotension [Recovered/Resolved]
  - Oedema peripheral [Recovering/Resolving]
  - Tachycardia [Recovered/Resolved]

NARRATIVE: CASE EVENT DATE: 20150625
